FAERS Safety Report 13546915 (Version 1)
Quarter: 2017Q2

REPORT INFORMATION
  Report Type: Spontaneous
  Country: US (occurrence: US)
  Receive Date: 20170515
  Receipt Date: 20170515
  Transmission Date: 20170830
  Serious: Yes (Life-Threatening, Hospitalization)
  Sender: FDA-Public Use
  Company Number: US-LPDUSPRD-20170192

PATIENT
  Age: 49 Year
  Sex: Male

DRUGS (6)
  1. OLANZAPINE FOR INJECTION (0517-0955-01) [Suspect]
     Active Substance: OLANZAPINE
     Dosage: 5 MG
     Route: 065
  2. MIDAZOLAM [Concomitant]
     Active Substance: MIDAZOLAM HYDROCHLORIDE
     Dosage: DOSE NOT PROVIDED
     Route: 042
  3. HALOPERIDOL. [Suspect]
     Active Substance: HALOPERIDOL
     Dosage: 5 MG
     Route: 042
  4. CLONIDINE. [Concomitant]
     Active Substance: CLONIDINE
     Dosage: EVERY 8 HOURS
     Route: 048
  5. PROPOFOL. [Concomitant]
     Active Substance: PROPOFOL
     Dosage: DOSE NOT PROVIDED
     Route: 042
  6. QUETIAPINE. [Suspect]
     Active Substance: QUETIAPINE
     Dosage: 25 MG, TWICE DAILY

REACTIONS (2)
  - Neuroleptic malignant syndrome [Unknown]
  - Electrocardiogram QT prolonged [Unknown]
